FAERS Safety Report 18104136 (Version 1)
Quarter: 2020Q3

REPORT INFORMATION
  Report Type: Spontaneous
  Country: US (occurrence: US)
  Receive Date: 20200801
  Receipt Date: 20200801
  Transmission Date: 20201103
  Serious: Yes (Other)
  Sender: FDA-Public Use
  Company Number: None

PATIENT
  Age: 6 Year
  Sex: Male
  Weight: 19.35 kg

DRUGS (2)
  1. GUANFACINE. [Suspect]
     Active Substance: GUANFACINE
     Indication: ATTENTION DEFICIT HYPERACTIVITY DISORDER
     Dosage: ?          QUANTITY:60 TABLET(S);?
     Route: 048
     Dates: start: 20200731, end: 20200801
  2. FLUORIDE CHEWS [Concomitant]

REACTIONS (8)
  - Irritability [None]
  - Intentional self-injury [None]
  - Screaming [None]
  - Affective disorder [None]
  - Crying [None]
  - Feeling abnormal [None]
  - Disturbance in social behaviour [None]
  - Depression [None]

NARRATIVE: CASE EVENT DATE: 20200801
